FAERS Safety Report 6914419-8 (Version None)
Quarter: 2010Q3

REPORT INFORMATION
  Report Type: 
  Country: None (occurrence: None)
  Receive Date: 20100809
  Receipt Date: 20100730
  Transmission Date: 20110219
  Serious: Yes (Other)
  Sender: FDA-Public Use
  Company Number: US-PFIZER INC-2009262714

PATIENT
  Sex: Female
  Weight: 66 kg

DRUGS (5)
  1. PROVERA [Suspect]
     Indication: HORMONE THERAPY
     Dosage: UNK
  2. PREMPRO [Suspect]
     Indication: HORMONE THERAPY
     Dosage: UNK
     Dates: end: 20020101
  3. CYCRIN [Suspect]
     Indication: HORMONE THERAPY
     Dosage: UNK
  4. ESTRADERM [Suspect]
     Indication: HORMONE THERAPY
     Dosage: UNK
  5. PREMARIN [Suspect]
     Dosage: UNK

REACTIONS (1)
  - BREAST CANCER FEMALE [None]
